FAERS Safety Report 21500461 (Version 1)
Quarter: 2022Q4

REPORT INFORMATION
  Report Type: Spontaneous
  Country: US (occurrence: US)
  Receive Date: 20221025
  Receipt Date: 20221025
  Transmission Date: 20230113
  Serious: Yes (Hospitalization, Other)
  Sender: FDA-Public Use
  Company Number: US-APOTEX-2022AP014372

PATIENT
  Age: 65 Year
  Sex: Male

DRUGS (3)
  1. DILTIAZEM [Suspect]
     Active Substance: DILTIAZEM
     Indication: Product used for unknown indication
     Dosage: UNK
     Route: 065
  2. FENTANYL [Suspect]
     Active Substance: FENTANYL
     Indication: Product used for unknown indication
     Dosage: UNK
     Route: 065
  3. OXYCODONE [Suspect]
     Active Substance: OXYCODONE
     Indication: Product used for unknown indication
     Dosage: UNK
     Route: 065

REACTIONS (8)
  - Atrial fibrillation [Recovering/Resolving]
  - Toxicity to various agents [Recovering/Resolving]
  - Respiratory acidosis [Recovering/Resolving]
  - Drug screen positive [Unknown]
  - Cardiac arrest [Recovering/Resolving]
  - Overdose [Unknown]
  - Bradycardia [Recovered/Resolved]
  - Hypotension [Recovering/Resolving]
